FAERS Safety Report 18676919 (Version 2)
Quarter: 2022Q1

REPORT INFORMATION
  Report Type: Report from Study
  Country: CA (occurrence: CA)
  Receive Date: 20201229
  Receipt Date: 20220128
  Transmission Date: 20220423
  Serious: Yes (Other)
  Sender: FDA-Public Use
  Company Number: CA-PFIZER INC-2020512390

PATIENT
  Age: 41 Year
  Sex: Male

DRUGS (6)
  1. CELEBREX [Suspect]
     Active Substance: CELECOXIB
     Route: 065
  2. ERELZI [Suspect]
     Active Substance: ETANERCEPT-SZZS
     Indication: Ankylosing spondylitis
     Dosage: 50 MG, WEEKLY
     Route: 058
  3. ERELZI [Suspect]
     Active Substance: ETANERCEPT-SZZS
     Dosage: 40 MG, WEEKLY
     Route: 065
  4. DICLOFENAC [Suspect]
     Active Substance: DICLOFENAC
     Route: 065
  5. IBUPROFEN [Concomitant]
     Active Substance: IBUPROFEN
     Route: 065
  6. NAPROXEN [Concomitant]
     Active Substance: NAPROXEN
     Route: 065

REACTIONS (9)
  - Ankylosing spondylitis [Unknown]
  - Arthralgia [Unknown]
  - Back pain [Unknown]
  - Discomfort [Unknown]
  - Drug ineffective [Unknown]
  - Fatigue [Unknown]
  - Joint swelling [Unknown]
  - Musculoskeletal stiffness [Unknown]
  - Swelling [Unknown]
